FAERS Safety Report 25935180 (Version 2)
Quarter: 2025Q4

REPORT INFORMATION
  Report Type: Spontaneous
  Country: CA (occurrence: CA)
  Receive Date: 20251017
  Receipt Date: 20251205
  Transmission Date: 20260118
  Serious: Yes (Death, Other)
  Sender: PFIZER
  Company Number: CA-PFIZER INC-202500205171

PATIENT
  Age: 68 Year
  Sex: Male

DRUGS (2)
  1. IXIFI [Suspect]
     Active Substance: INFLIXIMAB-QBTX
     Indication: Crohn^s disease
     Dosage: 1 DF, HAD 2 INFUSION BACK TO BACK TO TOTAL 10MG/KG WHICH MD CONSIDERS FIRST INFUSION W0
     Route: 042
     Dates: start: 20250927, end: 20250927
  2. IXIFI [Suspect]
     Active Substance: INFLIXIMAB-QBTX
     Dosage: 1 DF, HAD 2 INFUSION BACK TO BACK TO TOTAL 10MG/KG WHICH MD CONSIDERS FIRST INFUSION W0
     Route: 042
     Dates: start: 2025

REACTIONS (1)
  - Death [Fatal]

NARRATIVE: CASE EVENT DATE: 20250101
